FAERS Safety Report 13238926 (Version 1)
Quarter: 2017Q1

REPORT INFORMATION
  Report Type: Spontaneous
  Country: US (occurrence: US)
  Receive Date: 20170216
  Receipt Date: 20170216
  Transmission Date: 20170428
  Serious: Yes (Other)
  Sender: FDA-Public Use
  Company Number: US-SHIONOGI, INC.-2017000132

PATIENT
  Age: 55 Year
  Sex: Female

DRUGS (1)
  1. OSPHENA [Suspect]
     Active Substance: OSPEMIFENE
     Indication: PRODUCT USED FOR UNKNOWN INDICATION
     Dosage: UNK
     Route: 065
     Dates: start: 201512

REACTIONS (4)
  - Endometrial thickening [Unknown]
  - Postmenopausal haemorrhage [Unknown]
  - Endometrial hyperplasia [Unknown]
  - Uterine polyp [Unknown]

NARRATIVE: CASE EVENT DATE: 201611
